FAERS Safety Report 20641118 (Version 5)
Quarter: 2022Q3

REPORT INFORMATION
  Report Type: Spontaneous
  Country: TR (occurrence: TR)
  Receive Date: 20220327
  Receipt Date: 20220919
  Transmission Date: 20221027
  Serious: Yes (Other)
  Sender: FDA-Public Use
  Company Number: TR-NOVARTISPH-NVSC2021TR036164

PATIENT
  Age: 14 Year
  Sex: Female
  Weight: 89 kg

DRUGS (5)
  1. TEGRETOL [Suspect]
     Active Substance: CARBAMAZEPINE
     Indication: Epilepsy
     Dosage: 10 MG
     Route: 048
  2. TEGRETOL [Suspect]
     Active Substance: CARBAMAZEPINE
     Dosage: 15 MG, TID
     Route: 048
  3. TEGRETOL [Suspect]
     Active Substance: CARBAMAZEPINE
     Dosage: 20 ML, BID (SINCE THE PATIENT WAS BORN)
     Route: 048
  4. CLOBAZAM [Concomitant]
     Active Substance: CLOBAZAM
     Indication: Epilepsy
     Dosage: 1.5 DOSAGE FORM, BID
     Route: 065
  5. LAMICTAL [Concomitant]
     Active Substance: LAMOTRIGINE
     Indication: Product used for unknown indication
     Dosage: UNK
     Route: 065

REACTIONS (9)
  - Movement disorder [Unknown]
  - Seizure [Unknown]
  - Epilepsy [Not Recovered/Not Resolved]
  - Gait inability [Unknown]
  - Inability to crawl [Unknown]
  - Peripheral vascular disorder [Unknown]
  - Muscle contractions involuntary [Unknown]
  - Product supply issue [Unknown]
  - Wrong technique in product usage process [Unknown]
